FAERS Safety Report 13653612 (Version 1)
Quarter: 2017Q2

REPORT INFORMATION
  Report Type: Spontaneous
  Country: US (occurrence: US)
  Receive Date: 20170614
  Receipt Date: 20170614
  Transmission Date: 20170830
  Serious: No
  Sender: FDA-Public Use
  Company Number: US-ROCHE-1325429

PATIENT

DRUGS (8)
  1. MELATONIN [Concomitant]
     Active Substance: MELATONIN
  2. LORAZEPAM. [Concomitant]
     Active Substance: LORAZEPAM
  3. PRILOSEC [Concomitant]
     Active Substance: OMEPRAZOLE MAGNESIUM
  4. TYLENOL [Concomitant]
     Active Substance: ACETAMINOPHEN
  5. VITAMIN B12 [Concomitant]
     Active Substance: CYANOCOBALAMIN
  6. XELODA [Suspect]
     Active Substance: CAPECITABINE
     Indication: COLON CANCER
     Dosage: 7 DAYS ON AND 7 DAYS OFF.
     Route: 065
  7. HYDRALAZINE [Concomitant]
     Active Substance: HYDRALAZINE HYDROCHLORIDE
  8. VITAMIN B3 [Concomitant]
     Active Substance: NIACIN

REACTIONS (2)
  - Nausea [Unknown]
  - Diarrhoea [Unknown]
